FAERS Safety Report 7818508-5 (Version None)
Quarter: 2011Q4

REPORT INFORMATION
  Report Type: 
  Country: None (occurrence: None)
  Receive Date: 20111017
  Receipt Date: 20111006
  Transmission Date: 20120403
  Serious: Yes (Other)
  Sender: FDA-Public Use
  Company Number: US-RB-030411-11

PATIENT

DRUGS (2)
  1. SUBOXONE [Suspect]
     Route: 065
  2. SUBOXONE [Suspect]
     Indication: DRUG WITHDRAWAL SYNDROME
     Route: 065
     Dates: start: 20110711, end: 20110711

REACTIONS (8)
  - DRUG DISPENSING ERROR [None]
  - DYSPHORIA [None]
  - DISSOCIATION [None]
  - PALPITATIONS [None]
  - LIVER DISORDER [None]
  - AGITATION [None]
  - FATIGUE [None]
  - HEART INJURY [None]
